FAERS Safety Report 4443639-X (Version None)
Quarter: 2004Q3

REPORT INFORMATION
  Report Type: 
  Country: None (occurrence: None)
  Receive Date: 20040903
  Receipt Date: 20040903
  Transmission Date: 20050211
  Serious: Yes (Hospitalization)
  Sender: FDA-Public Use
  Company Number: None

PATIENT
  Age: 43 Year
  Sex: Male
  Weight: 131.8 kg

DRUGS (2)
  1. CAPTOPRIL [Suspect]
     Indication: HYPERTENSION
     Dosage: 12.5 MG TID ORAL
     Route: 048
     Dates: start: 20030619, end: 20040619
  2. COZAAR [Suspect]
     Indication: HYPERTENSION
     Dosage: 50 MG DAILY ORAL
     Route: 048
     Dates: start: 20030619, end: 20040619

REACTIONS (2)
  - NEPHROPATHY [None]
  - RENAL FAILURE ACUTE [None]
